FAERS Safety Report 13633050 (Version 2)
Quarter: 2017Q2

REPORT INFORMATION
  Report Type: Report from Study
  Country: None (occurrence: US)
  Receive Date: 20170609
  Receipt Date: 20170629
  Transmission Date: 20170830
  Serious: Yes (Death, Other)
  Sender: FDA-Public Use
  Company Number: US-ABBVIE-17K-163-2000395-00

PATIENT
  Age: 63 Year
  Sex: Female
  Weight: 56.75 kg

DRUGS (3)
  1. BACLOFEN. [Suspect]
     Active Substance: BACLOFEN
     Indication: PRODUCT USED FOR UNKNOWN INDICATION
     Route: 065
  2. HUMIRA [Suspect]
     Active Substance: ADALIMUMAB
     Indication: CROHN^S DISEASE
     Route: 058
  3. HUMIRA [Suspect]
     Active Substance: ADALIMUMAB
     Route: 058
     Dates: end: 201703

REACTIONS (11)
  - Acute respiratory failure [Fatal]
  - Sepsis [Fatal]
  - Unresponsive to stimuli [Unknown]
  - Pneumonia [Fatal]
  - Fungal infection [Unknown]
  - Drug hypersensitivity [Unknown]
  - Spinal fracture [Unknown]
  - Staphylococcal infection [Unknown]
  - Hip surgery [Unknown]
  - Bacterial infection [Unknown]
  - Klebsiella infection [Unknown]

NARRATIVE: CASE EVENT DATE: 201605
